FAERS Safety Report 18339722 (Version 1)
Quarter: 2020Q4

REPORT INFORMATION
  Report Type: Spontaneous
  Country: US (occurrence: US)
  Receive Date: 20201002
  Receipt Date: 20201002
  Transmission Date: 20210113
  Serious: No
  Sender: FDA-Public Use
  Company Number: US-PFIZER INC-2020377644

PATIENT
  Age: 86 Year
  Sex: Male
  Weight: 68.95 kg

DRUGS (1)
  1. VYNDAMAX [Suspect]
     Active Substance: TAFAMIDIS
     Indication: CARDIAC FAILURE CONGESTIVE
     Dosage: 61 MG, 1X/DAY
     Route: 048
     Dates: end: 202009

REACTIONS (8)
  - Body height decreased [Unknown]
  - Off label use [Unknown]
  - Hypoaesthesia [Recovering/Resolving]
  - Gait disturbance [Unknown]
  - Anxiety [Unknown]
  - Product use in unapproved indication [Unknown]
  - Peripheral swelling [Recovering/Resolving]
  - Fluid retention [Unknown]
